FAERS Safety Report 8309131-7 (Version None)
Quarter: 2012Q2

REPORT INFORMATION
  Report Type: 
  Country: None (occurrence: None)
  Receive Date: 20120424
  Receipt Date: 20120419
  Transmission Date: 20120825
  Serious: Yes (Other)
  Sender: FDA-Public Use
  Company Number: PHHY2012JP033376

PATIENT
  Age: 73 Year
  Sex: Female

DRUGS (3)
  1. DISOPYRAMIDE [Interacting]
     Indication: ARRHYTHMIA
     Dosage: 300 MG, DAILY
  2. LANSOPRAZOLE [Suspect]
     Indication: GASTROOESOPHAGEAL REFLUX DISEASE
     Dosage: 15 MG, DAILY
  3. METHIMAZOLE [Concomitant]
     Indication: THYROID DISORDER
     Dosage: 5 MG, DAILY

REACTIONS (5)
  - DRUG INTERACTION [None]
  - RENAL IMPAIRMENT [None]
  - TORSADE DE POINTES [None]
  - ELECTROCARDIOGRAM QT PROLONGED [None]
  - SINUS BRADYCARDIA [None]
